FAERS Safety Report 8234634-3 (Version None)
Quarter: 2012Q1

REPORT INFORMATION
  Report Type: 
  Country: None (occurrence: None)
  Receive Date: 20120307
  Receipt Date: 20091005
  Transmission Date: 20120608
  Serious: Yes (Hospitalization, Other)
  Sender: FDA-Public Use
  Company Number: PHEH2009US11132

PATIENT
  Age: 61 Year
  Sex: Male
  Weight: 56.1 kg

DRUGS (3)
  1. LISINOPRIL [Suspect]
     Indication: HYPERTENSION
     Dosage: 10 MG, QD FOR OVER ONE YEAR, ORAL
     Route: 048
     Dates: end: 20090813
  2. AFINITOR [Suspect]
     Indication: RENAL CANCER METASTATIC
     Dosage: 10 MG, QD, ORAL
     Route: 048
     Dates: start: 20090723, end: 20090813
  3. METOPROLOL TARTRATE [Concomitant]

REACTIONS (2)
  - ANGIOEDEMA [None]
  - SWOLLEN TONGUE [None]
